FAERS Safety Report 4531109-X (Version None)
Quarter: 2004Q4

REPORT INFORMATION
  Report Type: 
  Country: None (occurrence: None)
  Receive Date: 20041130
  Receipt Date: 20040226
  Transmission Date: 20050328
  Serious: Yes (Other)
  Sender: FDA-Public Use
  Company Number: WAES 0205USA01275

PATIENT
  Age: 77 Year
  Sex: Female

DRUGS (5)
  1. FOSAMAX [Suspect]
     Indication: OSTEOPOROSIS
     Dosage: 70 MG/WKY/PO
     Route: 048
     Dates: start: 20010201, end: 20010801
  2. DIOVAN [Concomitant]
  3. HYTRIN [Concomitant]
  4. KLONOPIN [Concomitant]
  5. ATENOLOL [Concomitant]

REACTIONS (14)
  - ADVERSE EVENT [None]
  - ASTHENIA [None]
  - BENIGN GASTRIC NEOPLASM [None]
  - FALL [None]
  - FATIGUE [None]
  - GASTRIC DISORDER [None]
  - GASTRITIS [None]
  - HEADACHE [None]
  - LIMB INJURY [None]
  - NASOPHARYNGEAL DISORDER [None]
  - OESOPHAGEAL STENOSIS [None]
  - OESOPHAGITIS [None]
  - SYNCOPE [None]
  - VISUAL ACUITY REDUCED [None]
